FAERS Safety Report 22201697 (Version 1)
Quarter: 2023Q2

REPORT INFORMATION
  Report Type: Spontaneous
  Country: CN (occurrence: CN)
  Receive Date: 20230412
  Receipt Date: 20230412
  Transmission Date: 20230721
  Serious: Yes (Hospitalization)
  Sender: FDA-Public Use
  Company Number: CN-BAYER-2023A044097

PATIENT
  Age: 79 Year
  Sex: Female
  Weight: 62 kg

DRUGS (2)
  1. GLUCOBAY [Suspect]
     Active Substance: ACARBOSE
     Indication: Type 2 diabetes mellitus
     Dosage: 50 MG, TID
     Route: 048
     Dates: end: 20230223
  2. GLUCOBAY [Suspect]
     Active Substance: ACARBOSE
     Indication: Type 2 diabetes mellitus
     Dosage: 100 MG, TID
     Route: 048
     Dates: start: 20230224, end: 20230307

REACTIONS (4)
  - Productive cough [None]
  - Back pain [None]
  - Blood glucose abnormal [None]
  - Abdominal distension [Recovering/Resolving]

NARRATIVE: CASE EVENT DATE: 20221101
